FAERS Safety Report 10332713 (Version 1)
Quarter: 2014Q3

REPORT INFORMATION
  Report Type: Spontaneous
  Country: US (occurrence: US)
  Receive Date: 20140722
  Receipt Date: 20140722
  Transmission Date: 20150326
  Serious: No
  Sender: FDA-Public Use
  Company Number: US-ASTRAZENECA-2013SE89313

PATIENT
  Age: 66 Year
  Sex: Female
  Weight: 41.3 kg

DRUGS (15)
  1. ISOSORBMONO [Concomitant]
     Route: 048
     Dates: start: 2000
  2. DULERA [Concomitant]
     Active Substance: FORMOTEROL FUMARATE DIHYDRATE\MOMETASONE FUROATE
     Indication: LUNG DISORDER
     Route: 055
     Dates: start: 2013
  3. QUETIAPINE [Suspect]
     Active Substance: QUETIAPINE
     Indication: DEPRESSION
     Dosage: 25 MG DAILY (GENERIC)
     Route: 048
     Dates: start: 201311
  4. CRESTOR [Suspect]
     Active Substance: ROSUVASTATIN CALCIUM
     Indication: BLOOD CHOLESTEROL INCREASED
     Route: 048
     Dates: start: 2003
  5. XANAX [Concomitant]
     Active Substance: ALPRAZOLAM
     Indication: ANXIETY
     Dosage: 0.25 MG AS REQUIRED (GENERIC)
     Route: 048
     Dates: start: 2010
  6. FOLIC ACID. [Concomitant]
     Active Substance: FOLIC ACID
     Route: 048
  7. COMBIVENT [Concomitant]
     Active Substance: ALBUTEROL SULFATE\IPRATROPIUM BROMIDE
     Indication: LUNG DISORDER
     Dosage: 20 MCG/100 MCG AS REQUIRED
     Route: 055
     Dates: start: 2010
  8. QUETIAPINE [Suspect]
     Active Substance: QUETIAPINE
     Indication: DEPRESSION
     Dosage: 25 MG TWO TIMES A DAY (GENERIC)
     Route: 048
     Dates: start: 201311
  9. MIRTAZAPINE. [Concomitant]
     Active Substance: MIRTAZAPINE
     Indication: DEPRESSION
     Route: 048
     Dates: start: 2000
  10. SPIRIVA [Concomitant]
     Active Substance: TIOTROPIUM BROMIDE MONOHYDRATE
     Indication: LUNG DISORDER
     Route: 055
     Dates: start: 2013
  11. DILTIAZAM [Concomitant]
     Indication: HYPERTENSION
     Route: 048
     Dates: start: 2003
  12. SUCRALFATE. [Concomitant]
     Active Substance: SUCRALFATE
     Indication: ULCER
     Dosage: 1GM FOUR TIMES A DAY
     Route: 048
     Dates: start: 2000
  13. MUCINEX [Concomitant]
     Active Substance: GUAIFENESIN
     Route: 048
  14. OMEPRAZOLE. [Suspect]
     Active Substance: OMEPRAZOLE
     Indication: ULCER
     Route: 048
     Dates: start: 2013
  15. SUPER B COMPLEX [Concomitant]
     Active Substance: CYANOCOBALAMIN\DEXPANTHENOL\NIACINAMIDE\PYRIDOXINE HYDROCHLORIDE\RIBOFLAVIN 5^-PHOSPHATE SODIUM\THIAMINE HYDROCHLORIDE\VITAMIN B COMPLEX
     Dosage: DAILY
     Route: 048

REACTIONS (7)
  - Decreased activity [Unknown]
  - Weight decreased [Unknown]
  - Drug ineffective [Unknown]
  - Somnolence [Unknown]
  - Depressed mood [Unknown]
  - Social avoidant behaviour [Unknown]
  - Crying [Unknown]
